FAERS Safety Report 8240862-3 (Version None)
Quarter: 2012Q1

REPORT INFORMATION
  Report Type: 
  Country: None (occurrence: None)
  Receive Date: 20120328
  Receipt Date: 20120322
  Transmission Date: 20120608
  Serious: Yes (Other)
  Sender: FDA-Public Use
  Company Number: DE-JNJFOC-20120307206

PATIENT
  Sex: Male

DRUGS (1)
  1. XARELTO [Suspect]
     Indication: ATRIAL FIBRILLATION
     Route: 048
     Dates: end: 20111209

REACTIONS (2)
  - TRANSAMINASES INCREASED [None]
  - GAMMA-GLUTAMYLTRANSFERASE INCREASED [None]
